FAERS Safety Report 8630913 (Version 1)
Quarter: 2012Q4

REPORT INFORMATION
  Report Type: 
  Country: BR (occurrence: BR)
  Receive Date: 20120829
  Receipt Date: 20120829
  Transmission Date: 20130627
  Serious: Yes (Death, Hospitalization, Other)
  Sender: FDA-Public Use
  Company Number: PHHY2012BR052998

PATIENT
  Sex: Male

DRUGS (5)
  1. EXELON PATCH [Suspect]
     Indication: DEMENTIA ALZHEIMER^S TYPE
     Dosage: 4.6 mg, QD
     Route: 062
     Dates: start: 20120424, end: 20120502
  2. LOSARTAN [Concomitant]
     Indication: BLOOD PRESSURE
     Dosage: 100 mg, UNK
  3. HYDROCHLOROTHIAZIDE [Concomitant]
     Indication: BLOOD PRESSURE
     Dosage: 12.5 mg, QD, at morning
  4. OMEPRAZOLE [Concomitant]
     Indication: GASTRIC DISORDER
     Dosage: 20 mg, QD
  5. DIMETICONE [Concomitant]
     Indication: FLATULENCE
     Dosage: 20 mg, QD

REACTIONS (5)
  - Pneumonia [Fatal]
  - Myocardial infarction [Fatal]
  - Renal failure [Fatal]
  - Vascular dementia [Unknown]
  - Anaemia [Unknown]
